FAERS Safety Report 23649120 (Version 1)
Quarter: 2024Q1

REPORT INFORMATION
  Report Type: Spontaneous
  Country: US (occurrence: None)
  Receive Date: 20240318
  Receipt Date: 20240318
  Transmission Date: 20240410
  Serious: Yes (Life-Threatening, Hospitalization, Disabling)
  Sender: FDA-Public Use
  Company Number: None

PATIENT
  Sex: Male

DRUGS (1)
  1. BACLOFEN [Suspect]
     Active Substance: BACLOFEN

REACTIONS (5)
  - Cerebrovascular accident [None]
  - Meningitis [None]
  - Staphylococcal infection [None]
  - Staphylococcal infection [None]
  - Recalled product administered [None]

NARRATIVE: CASE EVENT DATE: 20190913
